FAERS Safety Report 9712756 (Version 1)
Quarter: 2013Q4

REPORT INFORMATION
  Report Type: Spontaneous
  Country: US (occurrence: US)
  Receive Date: 20131126
  Receipt Date: 20131126
  Transmission Date: 20140711
  Serious: No
  Sender: FDA-Public Use
  Company Number: US-BRISTOL-MYERS SQUIBB COMPANY-19231430

PATIENT
  Age: 69 Year
  Sex: Female
  Weight: 65.76 kg

DRUGS (13)
  1. BYDUREON [Suspect]
     Dates: start: 2013
  2. ASPIRIN [Concomitant]
  3. CELEBREX [Concomitant]
  4. DIGOXIN [Concomitant]
  5. METFORMIN [Concomitant]
  6. LIPITOR [Concomitant]
  7. TRICOR [Concomitant]
  8. VITAMINS [Concomitant]
  9. FISH OIL [Concomitant]
  10. FOLIC ACID [Concomitant]
  11. CALCIUM [Concomitant]
  12. VITAMIN D [Concomitant]
  13. ALENDRONATE [Concomitant]

REACTIONS (2)
  - Injection site mass [Unknown]
  - Injection site haemorrhage [Unknown]
